FAERS Safety Report 22254296 (Version 1)
Quarter: 2023Q2

REPORT INFORMATION
  Report Type: Spontaneous
  Country: US (occurrence: None)
  Receive Date: 20230425
  Receipt Date: 20230425
  Transmission Date: 20230721
  Serious: Yes (Life-Threatening, Other)
  Sender: FDA-Public Use
  Company Number: None

PATIENT
  Age: 88 Year
  Sex: Male
  Weight: 96.6 kg

DRUGS (2)
  1. HYDRALAZINE HYDROCHLORIDE [Suspect]
     Active Substance: HYDRALAZINE HYDROCHLORIDE
     Indication: Hypertension
     Dosage: FREQUENCY : AS NEEDED;?
     Route: 040
     Dates: start: 20230420, end: 20230420
  2. LORATADINE [Concomitant]
     Active Substance: LORATADINE
     Dates: start: 20230420, end: 20230422

REACTIONS (8)
  - Flushing [None]
  - Tremor [None]
  - Heart rate increased [None]
  - Blood pressure increased [None]
  - Respiratory rate increased [None]
  - Agitation [None]
  - Anxiety [None]
  - Nervous system disorder [None]

NARRATIVE: CASE EVENT DATE: 20230420
